FAERS Safety Report 8225487-8 (Version None)
Quarter: 2012Q1

REPORT INFORMATION
  Report Type: 
  Country: None (occurrence: None)
  Receive Date: 20120321
  Receipt Date: 20120316
  Transmission Date: 20120608
  Serious: No
  Sender: FDA-Public Use
  Company Number: US-TEVA-328741USA

PATIENT
  Sex: Female

DRUGS (3)
  1. PAIN MED (NOS) [Concomitant]
  2. COPAXONE [Suspect]
     Indication: MULTIPLE SCLEROSIS
     Dosage: 20 MILLIGRAM;
     Route: 058
     Dates: start: 20100420
  3. ANTIDEPRESSANTS [Concomitant]

REACTIONS (1)
  - DENTAL CARIES [None]
